FAERS Safety Report 5071486-7 (Version None)
Quarter: 2006Q3

REPORT INFORMATION
  Report Type: 
  Country: None (occurrence: None)
  Receive Date: 20060804
  Receipt Date: 20060724
  Transmission Date: 20061208
  Serious: Yes (Life-Threatening, Hospitalization)
  Sender: FDA-Public Use
  Company Number: DK-SANOFI-SYNTHELABO-F01200601732

PATIENT
  Sex: Male

DRUGS (2)
  1. CAPECITABIN [Suspect]
     Dosage: 6650 MG/M^2 FOR 7 DAYS EVERY 14 DAYS
     Route: 048
     Dates: start: 20060620, end: 20060710
  2. ELOXATIN [Suspect]
     Indication: METASTASES TO LIVER
     Dosage: 190 MG EVERY OTHER WEEK
     Route: 025
     Dates: start: 20060620, end: 20060704

REACTIONS (6)
  - ABDOMINAL PAIN [None]
  - DEHYDRATION [None]
  - DUODENAL ULCER PERFORATION [None]
  - GENERAL PHYSICAL HEALTH DETERIORATION [None]
  - NAUSEA [None]
  - VOMITING [None]
